FAERS Safety Report 18439447 (Version 6)
Quarter: 2022Q2

REPORT INFORMATION
  Report Type: Report from Study
  Country: None (occurrence: US)
  Receive Date: 20201029
  Receipt Date: 20220415
  Transmission Date: 20220721
  Serious: Yes (Other)
  Sender: FDA-Public Use
  Company Number: US-AKCEA THERAPEUTICS-2020IS001384

PATIENT
  Age: 77 Year
  Sex: Female

DRUGS (2)
  1. TEGSEDI [Suspect]
     Active Substance: INOTERSEN SODIUM
     Indication: Hereditary neuropathic amyloidosis
     Route: 058
     Dates: start: 20190121, end: 20210921
  2. DEVICE [Suspect]
     Active Substance: DEVICE

REACTIONS (13)
  - Urinary occult blood positive [Unknown]
  - Bacterial test positive [Unknown]
  - Blood creatinine increased [Not Recovered/Not Resolved]
  - Red blood cells urine positive [Unknown]
  - Urine protein/creatinine ratio increased [Unknown]
  - Urine leukocyte esterase positive [Unknown]
  - Creatinine urine abnormal [Unknown]
  - Protein urine present [Unknown]
  - Urine abnormality [Unknown]
  - Nitrite urine present [Unknown]
  - Platelet count abnormal [Not Recovered/Not Resolved]
  - Thrombocytopenia [Unknown]
  - Haemorrhage [Unknown]
